FAERS Safety Report 10244883 (Version 1)
Quarter: 2014Q2

REPORT INFORMATION
  Report Type: Spontaneous
  Country: US (occurrence: US)
  Receive Date: 20140618
  Receipt Date: 20140618
  Transmission Date: 20141212
  Serious: No
  Sender: FDA-Public Use
  Company Number: US-GALDERMA-US14000937

PATIENT
  Age: 69 Year
  Sex: Female

DRUGS (15)
  1. PRILOSEC [Concomitant]
     Indication: GASTROOESOPHAGEAL REFLUX DISEASE
     Dosage: 20.6 MG
     Route: 048
  2. COUMADIN [Concomitant]
     Indication: PULMONARY EMBOLISM
     Dosage: 5 MG
     Route: 048
     Dates: start: 201203
  3. COUMADIN [Concomitant]
     Dosage: 2.5 MG
     Route: 048
     Dates: start: 201203
  4. CLINIQUE SOAP [Concomitant]
     Indication: THERAPEUTIC SKIN CARE TOPICAL
     Route: 061
     Dates: start: 1975
  5. CLINIQUE MOISTURIZER [Concomitant]
     Indication: DRY SKIN PROPHYLAXIS
     Route: 061
     Dates: start: 1975
  6. FLONASE [Concomitant]
     Dosage: 50 MCG
     Route: 045
  7. ASTELIN [Concomitant]
     Dosage: 0.137 MG
     Route: 045
  8. DOVE SENSITIVE SKIN [Concomitant]
     Route: 061
  9. SOLARAY MULTIPLE VITAMIN [Concomitant]
     Route: 048
  10. SOURCE NATURALS GLUCOSAMINE CHONDROITIN COMPLEX WITH MSM [Concomitant]
     Route: 048
  11. KAL CAL-CITRATE [Concomitant]
     Dosage: 1000 MG
     Route: 048
  12. SOLARAY VITAMIN C BIOFLAVONOIDS [Concomitant]
     Dosage: 500 MG
     Route: 048
  13. MIRVASO (BRIMONIDINE) TOPICAL GEL, 0.33% [Suspect]
     Indication: ROSACEA
     Dosage: 0.33%
     Route: 061
     Dates: start: 20140303, end: 20140303
  14. MIRVASO (BRIMONIDINE) TOPICAL GEL, 0.33% [Suspect]
     Route: 061
     Dates: start: 20140306, end: 20140310
  15. LIPITOR [Concomitant]
     Indication: BLOOD CHOLESTEROL INCREASED
     Dosage: 10 MG
     Route: 048

REACTIONS (4)
  - Condition aggravated [Recovered/Resolved]
  - Feeling hot [Recovered/Resolved]
  - Erythema [Recovered/Resolved]
  - Drug ineffective [Recovered/Resolved]
